FAERS Safety Report 21992622 (Version 4)
Quarter: 2023Q1

REPORT INFORMATION
  Report Type: Other
  Country: US (occurrence: None)
  Receive Date: 20230215
  Receipt Date: 20230307
  Transmission Date: 20230418
  Serious: Yes (Death)
  Sender: FDA-Public Use
  Company Number: US-ROCHE-3285836

PATIENT
  Age: 73 Year
  Sex: Male

DRUGS (30)
  1. ACTEMRA [Suspect]
     Active Substance: TOCILIZUMAB
     Indication: Rheumatoid arthritis
     Dosage: INJECT 0.9ML (162 MG) SUBCUTANEOUSLY EVERY WEEK
     Route: 058
  2. ACTEMRA [Suspect]
     Active Substance: TOCILIZUMAB
  3. ACTEMRA [Suspect]
     Active Substance: TOCILIZUMAB
  4. ACTEMRA [Suspect]
     Active Substance: TOCILIZUMAB
     Indication: Chronic obstructive pulmonary disease
  5. ACTEMRA [Suspect]
     Active Substance: TOCILIZUMAB
  6. ACTEMRA [Suspect]
     Active Substance: TOCILIZUMAB
  7. ALBUTEROL [Concomitant]
     Active Substance: ALBUTEROL
  8. VITAMIN C [Concomitant]
     Active Substance: ASCORBIC ACID
  9. ASPIRIN [Concomitant]
     Active Substance: ASPIRIN
  10. LIPITOR [Concomitant]
     Active Substance: ATORVASTATIN CALCIUM
  11. WELLBUTRIN SR [Concomitant]
     Active Substance: BUPROPION HYDROCHLORIDE
  12. COREG [Concomitant]
     Active Substance: CARVEDILOL
  13. VITAMIN D3 [Concomitant]
     Active Substance: CHOLECALCIFEROL
  14. CATAPRES [Concomitant]
     Active Substance: CLONIDINE HYDROCHLORIDE
  15. PLAVIX [Concomitant]
     Active Substance: CLOPIDOGREL BISULFATE
  16. DULERA [Concomitant]
     Active Substance: FORMOTEROL FUMARATE DIHYDRATE\MOMETASONE FUROATE
  17. VASOTEC [Concomitant]
     Active Substance: ENALAPRIL MALEATE
  18. LASIX [Concomitant]
     Active Substance: FUROSEMIDE
  19. AMARYL [Concomitant]
     Active Substance: GLIMEPIRIDE
  20. NORCO [Concomitant]
     Active Substance: ACETAMINOPHEN\HYDROCODONE BITARTRATE
  21. MAGNESIUM OXIDE [Concomitant]
     Active Substance: MAGNESIUM OXIDE
  22. GLUCOPHAGE [Concomitant]
     Active Substance: METFORMIN HYDROCHLORIDE
  23. NARCAN [Concomitant]
     Active Substance: NALOXONE HYDROCHLORIDE
  24. PROTONIX [Concomitant]
     Active Substance: PANTOPRAZOLE SODIUM
  25. GLYCOLAX [Concomitant]
     Active Substance: POLYETHYLENE GLYCOL 3350
  26. DELTASONE [Concomitant]
     Active Substance: PREDNISONE
  27. SENOKOT [Concomitant]
     Active Substance: SENNOSIDES
  28. SPIRIVA RESPIMAT [Concomitant]
     Active Substance: TIOTROPIUM BROMIDE
  29. ALDACTONE [Concomitant]
     Active Substance: SPIRONOLACTONE
  30. FLOMAX [Concomitant]
     Active Substance: TAMSULOSIN HYDROCHLORIDE

REACTIONS (6)
  - Non-small cell lung cancer [Fatal]
  - Sepsis [Fatal]
  - Chronic obstructive pulmonary disease [Fatal]
  - Pneumonia [Fatal]
  - Pleural effusion [Fatal]
  - Rheumatoid arthritis [Fatal]
